FAERS Safety Report 9875551 (Version 3)
Quarter: 2014Q1

REPORT INFORMATION
  Report Type: Report from Study
  Country: CA (occurrence: CA)
  Receive Date: 20140206
  Receipt Date: 20140310
  Transmission Date: 20141002
  Serious: Yes (Death, Other)
  Sender: FDA-Public Use
  Company Number: CA-ROCHE-1308799

PATIENT
  Age: 73 Year
  Sex: Female

DRUGS (1)
  1. XELODA [Suspect]
     Indication: HEPATIC CANCER
     Route: 048
     Dates: start: 20131105, end: 20131119

REACTIONS (6)
  - Death [Fatal]
  - Dry mouth [Unknown]
  - Rash [Unknown]
  - Erythema [Unknown]
  - Constipation [Unknown]
  - Asthenia [Unknown]
